FAERS Safety Report 4448823-7 (Version None)
Quarter: 2004Q3

REPORT INFORMATION
  Report Type: 
  Country: None (occurrence: None)
  Receive Date: 20040909
  Receipt Date: 20040826
  Transmission Date: 20050211
  Serious: Yes (Death)
  Sender: FDA-Public Use
  Company Number: 208698

PATIENT
  Age: 58 Year

DRUGS (1)
  1. AVASTIN [Suspect]
     Dosage: INTRAVENOUS
     Route: 042

REACTIONS (1)
  - CEREBROVASCULAR ACCIDENT [None]
